FAERS Safety Report 5142485-1 (Version None)
Quarter: 2006Q4

REPORT INFORMATION
  Report Type: 
  Country: None (occurrence: None)
  Receive Date: 20061102
  Receipt Date: 20061025
  Transmission Date: 20070319
  Serious: Yes (Other)
  Sender: FDA-Public Use
  Company Number: US-ELI_LILLY_AND_COMPANY-US200610004473

PATIENT
  Age: 50 Year
  Sex: Female

DRUGS (5)
  1. GEMZAR [Suspect]
     Indication: BREAST CANCER METASTATIC
     Dosage: 750 MG, OTHER
     Dates: start: 20030101, end: 20061001
  2. CISPLATIN [Concomitant]
     Indication: BREAST CANCER METASTATIC
     Dosage: 15 MG, OTHER
     Dates: start: 20030101, end: 20061001
  3. CISPLATIN [Concomitant]
     Dosage: 20 MG, OTHER
  4. DECADRON [Concomitant]
     Indication: PREMEDICATION
  5. OXYCONTIN [Concomitant]
     Indication: PAIN

REACTIONS (3)
  - HEADACHE [None]
  - VASCULITIS CEREBRAL [None]
  - VISION BLURRED [None]
